FAERS Safety Report 4274708-5 (Version None)
Quarter: 2004Q1

REPORT INFORMATION
  Report Type: 
  Country: None (occurrence: None)
  Receive Date: 20040120
  Receipt Date: 20040120
  Transmission Date: 20041129
  Serious: No
  Sender: FDA-Public Use
  Company Number: None

PATIENT
  Age: 42 Year
  Sex: Male

DRUGS (4)
  1. TRAZODONE HCL [Suspect]
     Indication: DEPRESSION
     Dosage: 100 MG ONCE ORAL
     Route: 048
     Dates: start: 20031124
  2. TRAZODONE HCL [Suspect]
     Indication: INSOMNIA
     Dosage: 100 MG ONCE ORAL
     Route: 048
     Dates: start: 20031124
  3. PROZAC [Concomitant]
  4. ZYPREXA [Concomitant]

REACTIONS (1)
  - PRIAPISM [None]
